FAERS Safety Report 6069648-5 (Version None)
Quarter: 2009Q1

REPORT INFORMATION
  Report Type: 
  Country: None (occurrence: None)
  Receive Date: 20090209
  Receipt Date: 20090131
  Transmission Date: 20090719
  Serious: Yes (Hospitalization)
  Sender: FDA-Public Use
  Company Number: NL-JNJFOC-20090200990

PATIENT
  Age: 44 Year
  Sex: Male

DRUGS (9)
  1. RISPERDAL [Suspect]
     Route: 065
  2. RISPERDAL [Suspect]
     Route: 065
  3. RISPERDAL [Suspect]
     Route: 065
  4. RISPERDAL [Suspect]
     Route: 065
  5. RISPERDAL [Suspect]
     Indication: PSYCHOTIC DISORDER
     Route: 065
  6. OXAZEPAM [Suspect]
     Indication: DRUG USE FOR UNKNOWN INDICATION
     Dosage: WHEN NEEDED 1 TO 2 TIMES A DAY 10 MG EXTRA
     Route: 065
  7. CITALOPRAM HYDROBROMIDE [Suspect]
     Indication: DRUG USE FOR UNKNOWN INDICATION
     Route: 065
  8. CARBAMAZEPINE [Concomitant]
     Route: 065
  9. NOZINAN [Concomitant]
     Route: 065

REACTIONS (2)
  - AGGRESSION [None]
  - SEDATION [None]
